FAERS Safety Report 5775504-X (Version None)
Quarter: 2008Q2

REPORT INFORMATION
  Report Type: 
  Country: None (occurrence: None)
  Receive Date: 20080617
  Receipt Date: 20080604
  Transmission Date: 20081010
  Serious: Yes (Hospitalization)
  Sender: FDA-Public Use
  Company Number: TR-TYCO HEALTHCARE/MALLINCKRODT-T200800989

PATIENT

DRUGS (4)
  1. FLUOXETINE [Suspect]
     Dosage: 20 MG/DAY, UNK
     Route: 048
  2. METOPROLOL [Concomitant]
     Dosage: 50 MG, BID
  3. ATORVASTATIN [Concomitant]
     Dosage: 20 MG, QD
  4. INSULIN [Concomitant]
     Dosage: INTENSIVE THERAPY FOR AT LEAST 6 MONTHS

REACTIONS (3)
  - INAPPROPRIATE ANTIDIURETIC HORMONE SECRETION [None]
  - POLYDIPSIA PSYCHOGENIC [None]
  - PYELONEPHRITIS ACUTE [None]
